FAERS Safety Report 9473374 (Version 1)
Quarter: 2013Q3

REPORT INFORMATION
  Report Type: Spontaneous
  Country: US (occurrence: US)
  Receive Date: 20130823
  Receipt Date: 20130823
  Transmission Date: 20140515
  Serious: No
  Sender: FDA-Public Use
  Company Number: US-BRISTOL-MYERS SQUIBB COMPANY-18931337

PATIENT
  Age: 46 Year
  Sex: Female
  Weight: 58.96 kg

DRUGS (9)
  1. SPRYCEL [Suspect]
     Indication: ACUTE LYMPHOCYTIC LEUKAEMIA
     Route: 048
     Dates: start: 20120920
  2. PREDNISONE [Suspect]
  3. METHOTREXATE [Concomitant]
  4. MERCAPTOPURINE [Concomitant]
  5. ONDANSETRON [Concomitant]
  6. BACTRIM [Concomitant]
  7. MULTIVITAMIN [Concomitant]
  8. VALCYTE [Concomitant]
  9. VINCRISTINE [Concomitant]

REACTIONS (3)
  - Haematochezia [Unknown]
  - Insomnia [Unknown]
  - Skin disorder [Unknown]
